FAERS Safety Report 9441871 (Version 1)
Quarter: 2013Q3

REPORT INFORMATION
  Report Type: Report from Study
  Country: CA (occurrence: CA)
  Receive Date: 20130806
  Receipt Date: 20130806
  Transmission Date: 20140515
  Serious: Yes (Hospitalization)
  Sender: FDA-Public Use
  Company Number: CA-JNJFOC-20130718212

PATIENT
  Age: 63 Year
  Sex: Female
  Weight: 84 kg

DRUGS (10)
  1. REMICADE [Suspect]
     Indication: CROHN^S DISEASE
     Route: 042
     Dates: start: 20130422, end: 20130506
  2. ZOPICLONE [Concomitant]
     Route: 048
  3. PROZAC [Concomitant]
     Route: 048
  4. PLAVIX [Concomitant]
     Route: 048
  5. IMURAN [Concomitant]
     Route: 048
  6. ALLOPURINOL [Concomitant]
     Route: 048
  7. IMODIUM [Concomitant]
     Route: 048
  8. MVI [Concomitant]
     Route: 042
  9. CALTRATE [Concomitant]
     Route: 048
  10. CRESTOR [Concomitant]
     Route: 048

REACTIONS (3)
  - Infection [Unknown]
  - White blood cell count decreased [Unknown]
  - Cardiac disorder [Unknown]
